FAERS Safety Report 4676695-4 (Version None)
Quarter: 2005Q2

REPORT INFORMATION
  Report Type: 
  Country: None (occurrence: None)
  Receive Date: 20050527
  Receipt Date: 20050523
  Transmission Date: 20051028
  Serious: Yes (Hospitalization)
  Sender: FDA-Public Use
  Company Number: PHNU2005DE02058

PATIENT
  Sex: Female

DRUGS (1)
  1. LEPONEX / CLOZARIL (CLOZAPINE) [Suspect]
     Indication: SCHIZOPHRENIA
     Route: 048
     Dates: start: 20040101

REACTIONS (3)
  - ACUTE RESPIRATORY DISTRESS SYNDROME [None]
  - LIFE SUPPORT [None]
  - MYCOPLASMA INFECTION [None]
